FAERS Safety Report 21268875 (Version 2)
Quarter: 2022Q3

REPORT INFORMATION
  Report Type: Other
  Country: US (occurrence: None)
  Receive Date: 20220830
  Receipt Date: 20220902
  Transmission Date: 20221027
  Serious: Yes (Other)
  Sender: FDA-Public Use
  Company Number: US-ROCHE-3167856

PATIENT
  Sex: Female

DRUGS (1)
  1. VALCYTE [Suspect]
     Active Substance: VALGANCICLOVIR HYDROCHLORIDE
     Indication: Renal transplant
     Dosage: 2 TABS
     Route: 048

REACTIONS (3)
  - Pain in extremity [Unknown]
  - Systemic lupus erythematosus [Unknown]
  - Stress [Unknown]
